FAERS Safety Report 7984220-5 (Version None)
Quarter: 2011Q4

REPORT INFORMATION
  Report Type: 
  Country: None (occurrence: None)
  Receive Date: 20111214
  Receipt Date: 20111130
  Transmission Date: 20120403
  Serious: Yes (Death, Hospitalization)
  Sender: FDA-Public Use
  Company Number: UTC-012305

PATIENT
  Age: 79 Year
  Sex: Female
  Weight: 47.7 kg

DRUGS (2)
  1. TYVASO [Suspect]
     Indication: COR PULMONALE CHRONIC
     Dosage: 216 MCG (54 MCG,4 IN 1 D),INHALATION
     Route: 056
     Dates: start: 20110714
  2. DIURETICS (DIURETICS) [Concomitant]

REACTIONS (2)
  - PNEUMONIA [None]
  - ASTHENIA [None]
